FAERS Safety Report 15101337 (Version 3)
Quarter: 2018Q3

REPORT INFORMATION
  Report Type: Spontaneous
  Country: JP (occurrence: JP)
  Receive Date: 20180703
  Receipt Date: 20180924
  Transmission Date: 20181010
  Serious: Yes (Hospitalization)
  Sender: FDA-Public Use
  Company Number: JP-B.I. PHARMACEUTICALS,INC./RIDGEFIELD-2018-NB-003643

PATIENT
  Age: 85 Year
  Sex: Female
  Weight: 39.7 kg

DRUGS (7)
  1. FERRUM [Concomitant]
     Active Substance: FERROUS FUMARATE
     Indication: NEPHROGENIC ANAEMIA
     Route: 048
     Dates: start: 20180310, end: 20180407
  2. VOGLIBOSE [Concomitant]
     Active Substance: VOGLIBOSE
     Indication: DIABETES MELLITUS
     Route: 048
  3. TRAZENTA [Suspect]
     Active Substance: LINAGLIPTIN
     Indication: DIABETES MELLITUS
     Route: 048
     Dates: start: 20180303, end: 20180411
  4. EBRANTIL [Concomitant]
     Active Substance: URAPIDIL
     Indication: NEUROGENIC BLADDER
     Route: 048
     Dates: start: 20180310
  5. GLIMEPIRIDE. [Concomitant]
     Active Substance: GLIMEPIRIDE
     Route: 048
     Dates: start: 20180426
  6. RABEPRAZOLE NA [Concomitant]
     Active Substance: RABEPRAZOLE SODIUM
     Indication: PRODUCT USED FOR UNKNOWN INDICATION
     Route: 048
     Dates: start: 20171012
  7. GLIMEPIRIDE. [Concomitant]
     Active Substance: GLIMEPIRIDE
     Indication: DIABETES MELLITUS
     Route: 048
     Dates: start: 20180310, end: 20180425

REACTIONS (3)
  - Small intestine carcinoma [Not Recovered/Not Resolved]
  - Cholangitis [Recovering/Resolving]
  - Interstitial lung disease [Recovered/Resolved]

NARRATIVE: CASE EVENT DATE: 20180325
